FAERS Safety Report 7139404-5 (Version None)
Quarter: 2010Q4

REPORT INFORMATION
  Report Type: 
  Country: None (occurrence: None)
  Receive Date: 20101206
  Receipt Date: 20101119
  Transmission Date: 20110411
  Serious: Yes (Hospitalization)
  Sender: FDA-Public Use
  Company Number: FR-PFIZER INC-2010153034

PATIENT
  Sex: Male

DRUGS (2)
  1. IBUPROFEN [Suspect]
  2. PARACETAMOL [Concomitant]

REACTIONS (2)
  - POLYURIA [None]
  - RENAL TUBULAR DISORDER [None]
